FAERS Safety Report 25897816 (Version 2)
Quarter: 2025Q4

REPORT INFORMATION
  Report Type: Spontaneous
  Country: EG (occurrence: EG)
  Receive Date: 20251008
  Receipt Date: 20251029
  Transmission Date: 20260118
  Serious: Yes (Hospitalization, Disabling, Other)
  Sender: NOVO NORDISK
  Company Number: EG-NOVOPROD-1533693

PATIENT
  Sex: Female
  Weight: 95 kg

DRUGS (3)
  1. INSULIN HUMAN [Suspect]
     Active Substance: INSULIN HUMAN
     Indication: Type 2 diabetes mellitus
     Dosage: 80 IU, QD (50U AT MORNING AND 30U AT NIGHT.)
     Route: 058
  2. LANTUS [Concomitant]
     Active Substance: INSULIN GLARGINE
     Indication: Type 2 diabetes mellitus
     Dosage: 10-15U QD
     Route: 058
  3. ACTRAPID [Concomitant]
     Active Substance: INSULIN HUMAN
     Indication: Type 2 diabetes mellitus
     Dosage: 25U OR 30U

REACTIONS (7)
  - Leg amputation [Unknown]
  - Kidney enlargement [Unknown]
  - Renal abscess [Unknown]
  - COVID-19 [Recovered/Resolved]
  - Wrong technique in product usage process [Unknown]
  - Product storage error [Unknown]
  - Product storage error [Unknown]
